FAERS Safety Report 20535323 (Version 1)
Quarter: 2022Q1

REPORT INFORMATION
  Report Type: Spontaneous
  Country: FR (occurrence: FR)
  Receive Date: 20220302
  Receipt Date: 20220302
  Transmission Date: 20220423
  Serious: Yes (Hospitalization, Disabling, Congenital Anomaly, Other)
  Sender: FDA-Public Use
  Company Number: FR-ABBVIE-22K-056-4296014-00

PATIENT
  Age: 15 Year
  Sex: Male

DRUGS (1)
  1. VALPROATE SODIUM [Suspect]
     Active Substance: VALPROATE SODIUM
     Indication: Maternal exposure timing unspecified
     Route: 064

REACTIONS (42)
  - Foetal anticonvulsant syndrome [Unknown]
  - Nasopharyngitis [Unknown]
  - Appendicitis [Unknown]
  - Enterobiasis [Unknown]
  - Dysmorphism [Unknown]
  - Lip disorder [Unknown]
  - Nose deformity [Unknown]
  - Skull malformation [Unknown]
  - Low set ears [Unknown]
  - Uvula aplasia [Unknown]
  - Congenital hand malformation [Unknown]
  - Dyspraxia [Unknown]
  - Psychomotor skills impaired [Unknown]
  - Visual impairment [Unknown]
  - Visuospatial deficit [Unknown]
  - Fatigue [Unknown]
  - Balance disorder [Unknown]
  - Pain [Unknown]
  - Speech disorder developmental [Unknown]
  - Communication disorder [Unknown]
  - Asthma [Unknown]
  - Hypotonia neonatal [Unknown]
  - Skin hyperpigmentation [Unknown]
  - Sleep disorder [Unknown]
  - Sleep terror [Unknown]
  - Crying [Unknown]
  - Cerebellar syndrome [Unknown]
  - Gait disturbance [Unknown]
  - Developmental coordination disorder [Unknown]
  - Joint laxity [Unknown]
  - Joint hyperextension [Unknown]
  - Congenital bowing of long bones [Unknown]
  - Learning disorder [Unknown]
  - Autism spectrum disorder [Unknown]
  - Stereotypy [Unknown]
  - Unevaluable event [Unknown]
  - Motor developmental delay [Unknown]
  - Foetal exposure during pregnancy [Unknown]
  - Otitis media [Unknown]
  - Constipation [Unknown]
  - Abdominal pain [Unknown]
  - Disturbance in attention [Unknown]

NARRATIVE: CASE EVENT DATE: 20040101
